FAERS Safety Report 7220849-X (Version None)
Quarter: 2011Q1

REPORT INFORMATION
  Report Type: 
  Country: None (occurrence: None)
  Receive Date: 20110112
  Receipt Date: 20101229
  Transmission Date: 20110831
  Serious: Yes (Other)
  Sender: FDA-Public Use
  Company Number: JP-CELGENEUS-087-21880-10102935

PATIENT
  Sex: Female

DRUGS (7)
  1. WARFARIN [Concomitant]
     Indication: PROPHYLAXIS
     Route: 048
     Dates: end: 20100930
  2. REVLIMID [Suspect]
     Route: 048
     Dates: start: 20101210, end: 20101216
  3. REVLIMID [Suspect]
     Route: 048
     Dates: start: 20101029, end: 20101118
  4. REVLIMID [Suspect]
     Route: 048
     Dates: start: 20101126, end: 20101209
  5. REVLIMID [Suspect]
     Indication: MYELODYSPLASTIC SYNDROME
     Route: 048
     Dates: start: 20100903, end: 20100921
  6. EXJADE [Concomitant]
     Route: 048
     Dates: end: 20100929
  7. PRIMOBOLAN [Concomitant]
     Route: 048
     Dates: end: 20100930

REACTIONS (4)
  - THROMBOCYTOPENIA [None]
  - NEUTROPENIA [None]
  - LIVER DISORDER [None]
  - RASH [None]
